FAERS Safety Report 24562420 (Version 1)
Quarter: 2024Q4

REPORT INFORMATION
  Report Type: Spontaneous
  Country: US (occurrence: US)
  Receive Date: 20241029
  Receipt Date: 20241029
  Transmission Date: 20250114
  Serious: No
  Sender: JOHNSON AND JOHNSON
  Company Number: US-JNJFOC-20241046262

PATIENT

DRUGS (1)
  1. RISPERDAL M-TAB [Suspect]
     Active Substance: RISPERIDONE
     Indication: Schizophrenia
     Route: 048

REACTIONS (1)
  - Treatment noncompliance [Unknown]
